APPROVED DRUG PRODUCT: CYPROHEPTADINE HYDROCHLORIDE
Active Ingredient: CYPROHEPTADINE HYDROCHLORIDE
Strength: 4MG
Dosage Form/Route: TABLET;ORAL
Application: A208938 | Product #001 | TE Code: AA
Applicant: ZYDUS PHARMACEUTICALS USA INC
Approved: May 19, 2017 | RLD: No | RS: Yes | Type: RX